FAERS Safety Report 9108544 (Version 1)
Quarter: 2013Q1

REPORT INFORMATION
  Report Type: Spontaneous
  Country: US (occurrence: US)
  Receive Date: 20130222
  Receipt Date: 20130222
  Transmission Date: 20140127
  Serious: No
  Sender: FDA-Public Use
  Company Number: US-BIOGENIDEC-2013BI016664

PATIENT
  Sex: Female

DRUGS (3)
  1. AVONEX [Suspect]
     Indication: MULTIPLE SCLEROSIS
     Route: 030
  2. AVONEX [Suspect]
     Indication: MULTIPLE SCLEROSIS
     Route: 030
     Dates: start: 20031220
  3. ADVIL [Concomitant]
     Indication: PREMEDICATION

REACTIONS (5)
  - Headache [Unknown]
  - Pain [Unknown]
  - Insomnia [Unknown]
  - Chills [Unknown]
  - Feeling abnormal [Unknown]
